FAERS Safety Report 15836642 (Version 3)
Quarter: 2019Q1

REPORT INFORMATION
  Report Type: Report from Study
  Country: ZA (occurrence: ZA)
  Receive Date: 20190117
  Receipt Date: 20190213
  Transmission Date: 20190417
  Serious: Yes (Death, Hospitalization)
  Sender: FDA-Public Use
  Company Number: ZA-SAKK-2019SA008458AA

PATIENT
  Age: 65 Year
  Sex: Male

DRUGS (6)
  1. CARLOC [Concomitant]
     Active Substance: CARVEDILOL
     Dosage: 5 MG, BID
     Route: 065
     Dates: start: 20181020
  2. GALVUS [Concomitant]
     Active Substance: VILDAGLIPTIN
     Dosage: 500 MG, BID
     Route: 065
     Dates: start: 20180831
  3. METFORMIN [Concomitant]
     Active Substance: METFORMIN HYDROCHLORIDE
     Dosage: 850 MG, BID
     Route: 065
     Dates: start: 20180601
  4. TOPZOLE [Concomitant]
     Active Substance: PANTOPRAZOLE SODIUM
     Dosage: 40 MG, QD (BEFORE BREAKFAST)
     Route: 065
     Dates: start: 20181004
  5. INSULIN GLARGINE [Suspect]
     Active Substance: INSULIN GLARGINE
     Dosage: 10 U, HS
     Dates: start: 20181211
  6. SELENIUM [Concomitant]
     Active Substance: SELENIUM
     Dosage: 1 DF, QD
     Route: 065
     Dates: start: 20181219

REACTIONS (7)
  - Blood pressure decreased [Unknown]
  - Infection [Fatal]
  - Ill-defined disorder [Not Recovered/Not Resolved]
  - Glycosylated haemoglobin increased [Unknown]
  - Skin abrasion [Fatal]
  - Pyrexia [Unknown]
  - Decubitus ulcer [Unknown]

NARRATIVE: CASE EVENT DATE: 20190109
